FAERS Safety Report 7902422-0 (Version None)
Quarter: 2011Q4

REPORT INFORMATION
  Report Type: 
  Country: None (occurrence: None)
  Receive Date: 20111108
  Receipt Date: 20111103
  Transmission Date: 20120403
  Serious: Yes (Other)
  Sender: FDA-Public Use
  Company Number: US-ABBOTT-11P-163-0844598-00

PATIENT
  Sex: Female
  Weight: 62.652 kg

DRUGS (13)
  1. ROWASA [Concomitant]
     Indication: COLITIS ULCERATIVE
  2. ASACOL [Concomitant]
     Indication: CROHN'S DISEASE
  3. ASACOL [Concomitant]
     Indication: COLITIS ULCERATIVE
  4. SYNTHROID [Concomitant]
     Indication: THYROID DISORDER
  5. TRAMADOL HCL [Concomitant]
     Indication: PAIN
  6. HUMIRA [Suspect]
     Indication: COLITIS ULCERATIVE
     Dates: start: 20110721, end: 20110806
  7. ADVAIR DISKUS 100/50 [Concomitant]
     Indication: DYSPNOEA
     Dosage: 1 PUFF BID
     Route: 055
  8. VITAMIN B-12 [Concomitant]
     Indication: PRODUCT USED FOR UNKNOWN INDICATION
     Dosage: DAILY
  9. PREDNISONE [Concomitant]
     Indication: INFLAMMATION
  10. CANASA [Concomitant]
     Indication: COLITIS ULCERATIVE
  11. NEXIUM [Concomitant]
     Indication: GASTROOESOPHAGEAL REFLUX DISEASE
  12. PREDNISONE [Concomitant]
     Indication: COLITIS ULCERATIVE
  13. MULTI-VITAMIN [Concomitant]
     Indication: PRODUCT USED FOR UNKNOWN INDICATION
     Dosage: DAILY

REACTIONS (4)
  - DYSPNOEA [None]
  - MALAISE [None]
  - SINUSITIS [None]
  - FUNGAL INFECTION [None]
